FAERS Safety Report 19593322 (Version 1)
Quarter: 2021Q3

REPORT INFORMATION
  Report Type: Spontaneous
  Country: US (occurrence: US)
  Receive Date: 20210722
  Receipt Date: 20210722
  Transmission Date: 20211014
  Serious: Yes (Hospitalization)
  Sender: FDA-Public Use
  Company Number: None

PATIENT
  Age: 45 Year
  Sex: Female

DRUGS (4)
  1. VITAMIN C TAB 500MG [Concomitant]
     Dates: start: 20210412
  2. HUMIRA [Suspect]
     Active Substance: ADALIMUMAB
     Indication: CROHN^S DISEASE
     Dosage: OTHER FREQUENCY:EVERY 2 WEEKS;?
     Route: 058
     Dates: start: 20210312
  3. VITAMIN B12 TAB 100MCG [Concomitant]
     Dates: start: 20210412
  4. PAXIL TAB 20MG [Concomitant]
     Dates: start: 20210412

REACTIONS (1)
  - Endometriosis [None]

NARRATIVE: CASE EVENT DATE: 20210630
